FAERS Safety Report 7974129-5 (Version None)
Quarter: 2011Q4

REPORT INFORMATION
  Report Type: 
  Country: None (occurrence: None)
  Receive Date: 20111213
  Receipt Date: 20111203
  Transmission Date: 20120403
  Serious: Yes (Hospitalization, Other)
  Sender: FDA-Public Use
  Company Number: US-BAYER-2011-079265

PATIENT
  Age: 20 Year
  Sex: Female
  Weight: 63 kg

DRUGS (4)
  1. FLAGYL [Concomitant]
     Dosage: UNK UNK, PRN
     Route: 048
     Dates: start: 20090701
  2. IBUPROFEN (ADVIL) [Concomitant]
     Dosage: UNK UNK, PRN
     Route: 048
  3. CIPROFLOXACIN [Concomitant]
     Dosage: UNK
     Route: 048
     Dates: start: 20090701
  4. YAZ [Suspect]
     Indication: CONTRACEPTION
     Dosage: UNK
     Route: 048
     Dates: start: 20081201, end: 20090701

REACTIONS (10)
  - BILIARY DYSKINESIA [None]
  - GALLBLADDER DISORDER [None]
  - FEAR [None]
  - ANXIETY [None]
  - PAIN [None]
  - CHOLECYSTITIS CHRONIC [None]
  - EMOTIONAL DISTRESS [None]
  - INJURY [None]
  - ABDOMINAL PAIN [None]
  - PSYCHOLOGICAL TRAUMA [None]
